FAERS Safety Report 5027868-2 (Version None)
Quarter: 2006Q2

REPORT INFORMATION
  Report Type: 
  Country: None (occurrence: None)
  Receive Date: 20060616
  Receipt Date: 20060601
  Transmission Date: 20061013
  Serious: Yes (Hospitalization)
  Sender: FDA-Public Use
  Company Number: JP-ROCHE-450138

PATIENT
  Age: 56 Year
  Sex: Female
  Weight: 52 kg

DRUGS (15)
  1. TOCILIZUMAB [Suspect]
     Indication: RHEUMATOID ARTHRITIS
     Route: 042
     Dates: start: 20040729
  2. TOCILIZUMAB [Suspect]
     Dosage: MRA012JP
     Route: 042
     Dates: start: 20030718, end: 20040729
  3. PREDNISOLONE [Concomitant]
     Route: 048
     Dates: start: 20050310
  4. LOXONIN [Concomitant]
     Route: 048
     Dates: start: 20010319
  5. ZANTAC [Concomitant]
     Route: 048
     Dates: start: 20010327
  6. MARZULENE S [Concomitant]
     Route: 048
     Dates: start: 20010210
  7. NORVASC [Concomitant]
     Route: 048
     Dates: start: 20010911
  8. GASTER [Concomitant]
     Route: 042
     Dates: start: 20040129, end: 20040201
  9. SOLDEM [Concomitant]
     Route: 042
     Dates: start: 20040129
  10. VOLTAREN [Concomitant]
     Route: 054
  11. ALFACALCIDOL [Concomitant]
     Route: 048
     Dates: start: 20020903
  12. CALCIUM ASPARTATE [Concomitant]
     Dates: start: 20020903
  13. FLURBIPROFEN [Concomitant]
     Dates: start: 20031215
  14. SIMVASTATIN [Concomitant]
     Route: 054
     Dates: start: 20050728
  15. RISEDRONATE SODIUM [Concomitant]
     Route: 048
     Dates: start: 20060302

REACTIONS (2)
  - CHEST DISCOMFORT [None]
  - PALPITATIONS [None]
